FAERS Safety Report 14032584 (Version 1)
Quarter: 2017Q4

REPORT INFORMATION
  Report Type: Spontaneous
  Country: DE (occurrence: DE)
  Receive Date: 20171003
  Receipt Date: 20171003
  Transmission Date: 20180321
  Serious: Yes (Death, Hospitalization)
  Sender: FDA-Public Use
  Company Number: DE-ACCORD-059374

PATIENT
  Age: 69 Year
  Sex: Male

DRUGS (1)
  1. CAPECITABINE ACCORD [Suspect]
     Active Substance: CAPECITABINE
     Indication: CHEMOTHERAPY
     Dosage: 4G IN THE MORNING AND?4G IN THE EVENING
     Route: 048
     Dates: start: 20170817, end: 20170830

REACTIONS (4)
  - Death [Fatal]
  - Diarrhoea haemorrhagic [Unknown]
  - Nausea [Unknown]
  - Ulcer [Unknown]
